FAERS Safety Report 14962839 (Version 1)
Quarter: 2018Q2

REPORT INFORMATION
  Report Type: Spontaneous
  Country: US (occurrence: US)
  Receive Date: 20180601
  Receipt Date: 20180601
  Transmission Date: 20180711
  Serious: Yes (Death)
  Sender: FDA-Public Use
  Company Number: US-FRESENIUS KABI-FK201806266

PATIENT
  Age: 76 Year
  Sex: Female

DRUGS (8)
  1. CEFTRIAXONE FOR INJECTION (MANUFACTURER UNKNOWN) [Suspect]
     Active Substance: CEFTRIAXONE
     Indication: PNEUMONIA
     Dosage: UNKNOWN
     Route: 065
  2. AZITHROMYCIN (MANUFACTURER UNKNOWN) [Suspect]
     Active Substance: AZITHROMYCIN ANHYDROUS
     Indication: EVIDENCE BASED TREATMENT
  3. MEROPENEM (MANUFACTURER UNKNOWN) [Suspect]
     Active Substance: MEROPENEM
     Indication: PNEUMONIA
     Dosage: UNKNOWN
     Route: 065
  4. LEVOFLOXACIN IN 5% DEXTROSE (MANUFACTURER UNKNOWN) [Suspect]
     Active Substance: LEVOFLOXACIN
     Indication: PNEUMONIA
     Dosage: UNKNOWN
     Route: 065
  5. AZITHROMYCIN (MANUFACTURER UNKNOWN) [Suspect]
     Active Substance: AZITHROMYCIN ANHYDROUS
     Indication: PNEUMONIA
     Dosage: UNKNOWN
     Route: 065
  6. CEFTRIAXONE FOR INJECTION (MANUFACTURER UNKNOWN) [Suspect]
     Active Substance: CEFTRIAXONE
     Indication: EVIDENCE BASED TREATMENT
  7. MEROPENEM (MANUFACTURER UNKNOWN) [Suspect]
     Active Substance: MEROPENEM
     Indication: EVIDENCE BASED TREATMENT
  8. LEVOFLOXACIN IN 5% DEXTROSE (MANUFACTURER UNKNOWN) [Suspect]
     Active Substance: LEVOFLOXACIN
     Indication: EVIDENCE BASED TREATMENT

REACTIONS (13)
  - Coagulation factor decreased [None]
  - Coagulation time prolonged [None]
  - Blood fibrinogen increased [None]
  - Antiphospholipid antibodies positive [None]
  - Respiratory disorder [None]
  - Subdural haematoma [None]
  - Subdural haematoma [Fatal]
  - Factor V inhibition [Fatal]
  - Brain herniation [Fatal]
  - Prothrombin time prolonged [None]
  - Abdominal wall haematoma [None]
  - Intracranial mass [None]
  - Haemorrhage intracranial [Fatal]
